FAERS Safety Report 6874956-1 (Version None)
Quarter: 2010Q3

REPORT INFORMATION
  Report Type: 
  Country: None (occurrence: None)
  Receive Date: 20100723
  Receipt Date: 20100712
  Transmission Date: 20110219
  Serious: Yes (Hospitalization)
  Sender: FDA-Public Use
  Company Number: 1000013028

PATIENT
  Age: 53 Year
  Sex: Female
  Weight: 58 kg

DRUGS (4)
  1. CITALOPRAM HYDROBROMIDE [Suspect]
     Indication: DEPRESSION
     Dosage: 20 MG (20 MG, 1IN 1 D) , ORAL
     Route: 048
     Dates: end: 20100228
  2. CITALOPRAM HYDROBROMIDE [Suspect]
     Indication: DEPRESSION
     Dosage: 40 MG (20 MG, 1 IN 1 D) ,ORAL
     Route: 048
     Dates: start: 20100301, end: 20100314
  3. AMILORIDE HCL AND HYDROCHLOROTHIAZIDE [Suspect]
     Indication: DIURETIC THERAPY
     Dosage: ORAL
     Route: 048
     Dates: start: 20100301, end: 20100314
  4. CENTYL [Suspect]

REACTIONS (5)
  - ACUTE CORONARY SYNDROME [None]
  - BLOOD ALBUMIN INCREASED [None]
  - BLOOD CHLORIDE DECREASED [None]
  - ELECTROCARDIOGRAM QT PROLONGED [None]
  - HYPOKALAEMIA [None]
